FAERS Safety Report 9510697 (Version 1)
Quarter: 2013Q3

REPORT INFORMATION
  Report Type: Spontaneous
  Country: None (occurrence: US)
  Receive Date: 20130909
  Receipt Date: 20130909
  Transmission Date: 20140515
  Serious: No
  Sender: FDA-Public Use
  Company Number: US-ALLERGAN-1208473US

PATIENT
  Sex: Male

DRUGS (8)
  1. SANCTURA [Suspect]
     Indication: PRODUCT USED FOR UNKNOWN INDICATION
     Dosage: UNK
     Dates: start: 20120509
  2. VESICARE /01735901/ [Suspect]
     Indication: MICTURITION URGENCY
     Dosage: 10 MG, UNKNOWN
     Route: 048
  3. VESICARE /01735901/ [Suspect]
     Dosage: 5 MG, UNKNOWN
     Dates: start: 201203
  4. VESICARE /01735901/ [Suspect]
  5. PRILOSEC /00661201/ [Suspect]
     Indication: DYSPEPSIA
  6. VIAGRA /01367501/ [Suspect]
     Indication: PRODUCT USED FOR UNKNOWN INDICATION
  7. CIALIS [Suspect]
     Indication: PRODUCT USED FOR UNKNOWN INDICATION
  8. METAMUCIL [Concomitant]

REACTIONS (5)
  - Cystitis [Unknown]
  - Arthralgia [Unknown]
  - Diarrhoea [Unknown]
  - Flatulence [Unknown]
  - Constipation [Unknown]
